FAERS Safety Report 21657022 (Version 2)
Quarter: 2022Q4

REPORT INFORMATION
  Report Type: Report from Study
  Country: LB (occurrence: LB)
  Receive Date: 20221129
  Receipt Date: 20221217
  Transmission Date: 20230113
  Serious: Yes (Hospitalization, Other)
  Sender: FDA-Public Use
  Company Number: LB-TAKEDA-2022TUS090631

PATIENT
  Age: 35 Year
  Sex: Female

DRUGS (1)
  1. VEDOLIZUMAB [Suspect]
     Active Substance: VEDOLIZUMAB
     Indication: Crohn^s disease
     Dosage: 300 MILLIGRAM
     Route: 042
     Dates: start: 2018

REACTIONS (3)
  - Crohn^s disease [Not Recovered/Not Resolved]
  - Product availability issue [Unknown]
  - Product dose omission issue [Unknown]
